FAERS Safety Report 20578218 (Version 3)
Quarter: 2022Q3

REPORT INFORMATION
  Report Type: Other
  Country: TR (occurrence: None)
  Receive Date: 20220310
  Receipt Date: 20220804
  Transmission Date: 20221026
  Serious: Yes (Other)
  Sender: FDA-Public Use
  Company Number: TR-ROCHE-3044525

PATIENT
  Age: 52 Year
  Sex: Male

DRUGS (7)
  1. RITUXIMAB [Suspect]
     Active Substance: RITUXIMAB
     Indication: Relapsing-remitting multiple sclerosis
     Route: 065
  2. OCRELIZUMAB [Suspect]
     Active Substance: OCRELIZUMAB
     Indication: Relapsing-remitting multiple sclerosis
     Route: 065
  3. INTERFERON BETA-1A [Concomitant]
     Active Substance: INTERFERON BETA-1A
  4. NATALIZUMAB [Concomitant]
     Active Substance: NATALIZUMAB
  5. FINGOLIMOD [Concomitant]
     Active Substance: FINGOLIMOD
  6. ALEMTUZUMAB [Concomitant]
     Active Substance: ALEMTUZUMAB
     Route: 042
  7. AVONEX [Concomitant]
     Active Substance: INTERFERON BETA-1A

REACTIONS (3)
  - Urinary tract infection [Unknown]
  - Drug ineffective [Unknown]
  - Therapy non-responder [Unknown]
